FAERS Safety Report 6416877-4 (Version None)
Quarter: 2009Q4

REPORT INFORMATION
  Report Type: 
  Country: None (occurrence: None)
  Receive Date: 20091023
  Receipt Date: 20091013
  Transmission Date: 20100525
  Serious: Yes (Life-Threatening, Hospitalization, Other)
  Sender: FDA-Public Use
  Company Number: ADR42992009

PATIENT
  Age: 39 Year
  Sex: Male

DRUGS (8)
  1. SIMVASTATIN [Suspect]
     Indication: BLOOD CHOLESTEROL INCREASED
     Dates: start: 20090217
  2. LISINOPRIL [Suspect]
     Indication: HYPERTENSION
     Dosage: 5 MG - 1/1DAY
  3. METFORMIN HCL [Suspect]
     Indication: TYPE 2 DIABETES MELLITUS
     Dosage: 500 MG - TID
  4. CLOMIPRAMINE [Concomitant]
  5. CLOZARIL [Concomitant]
  6. HYOSCINE [Concomitant]
  7. OMEPRAZOLE [Concomitant]
  8. SENNA [Concomitant]

REACTIONS (6)
  - AGITATION [None]
  - ALCOHOL USE [None]
  - COMA SCALE ABNORMAL [None]
  - MULTIPLE DRUG OVERDOSE [None]
  - NEUTROPHIL COUNT INCREASED [None]
  - WHITE BLOOD CELL COUNT INCREASED [None]
